FAERS Safety Report 5516987-X (Version None)
Quarter: 2007Q4

REPORT INFORMATION
  Report Type: 
  Country: None (occurrence: None)
  Receive Date: 20071114
  Receipt Date: 20070626
  Transmission Date: 20080405
  Serious: No
  Sender: FDA-Public Use
  Company Number: A0659793A

PATIENT
  Age: 25 Year
  Sex: Male

DRUGS (1)
  1. COMMIT [Suspect]
     Dates: start: 20070614

REACTIONS (3)
  - ABDOMINAL PAIN [None]
  - PAIN [None]
  - PAINFUL DEFAECATION [None]
